FAERS Safety Report 18559051 (Version 1)
Quarter: 2020Q4

REPORT INFORMATION
  Report Type: Spontaneous
  Country: US (occurrence: US)
  Receive Date: 20201130
  Receipt Date: 20201130
  Transmission Date: 20210114
  Serious: No
  Sender: FDA-Public Use
  Company Number: US-MYLANLABS-2020M1093734

PATIENT
  Sex: Female
  Weight: 101 kg

DRUGS (2)
  1. NITROGLYCERIN TRANSDERMAL DELIVERY SYSTEM [Suspect]
     Active Substance: NITROGLYCERIN
     Indication: CARDIAC FAILURE
     Dosage: 0.4 PERCENT
     Route: 062
     Dates: start: 20190805
  2. NITROGLYCERIN TRANSDERMAL DELIVERY SYSTEM [Suspect]
     Active Substance: NITROGLYCERIN
     Indication: MYOCARDIAL INFARCTION

REACTIONS (6)
  - Application site urticaria [Recovered/Resolved]
  - Wrong technique in product usage process [Not Recovered/Not Resolved]
  - Application site mass [Recovered/Resolved]
  - Application site rash [Recovered/Resolved]
  - Application site pain [Recovered/Resolved]
  - Application site erythema [Recovered/Resolved]
